FAERS Safety Report 25084074 (Version 1)
Quarter: 2025Q1

REPORT INFORMATION
  Report Type: Spontaneous
  Country: US (occurrence: None)
  Receive Date: 20250315
  Receipt Date: 20250315
  Transmission Date: 20250408
  Serious: Yes (Hospitalization)
  Sender: FDA-CTU
  Company Number: None

PATIENT
  Age: 3 Year
  Sex: Female

DRUGS (1)
  1. VIGABATRIN [Suspect]
     Active Substance: VIGABATRIN
     Indication: Seizure
     Dosage: FREQUENCY : DAILY;?OTHER ROUTE : PACKETS ;?
     Route: 050
     Dates: start: 202207

REACTIONS (1)
  - Febrile convulsion [None]

NARRATIVE: CASE EVENT DATE: 20250304
